FAERS Safety Report 14209915 (Version 1)
Quarter: 2017Q4

REPORT INFORMATION
  Report Type: Spontaneous
  Country: US (occurrence: US)
  Receive Date: 20171121
  Receipt Date: 20171121
  Transmission Date: 20180321
  Serious: No
  Sender: FDA-Public Use
  Company Number: None

PATIENT
  Sex: Female

DRUGS (2)
  1. PATADAY [Suspect]
     Active Substance: OLOPATADINE HYDROCHLORIDE
  2. ZADITOR [Suspect]
     Active Substance: KETOTIFEN FUMARATE

REACTIONS (2)
  - Drug ineffective [None]
  - Treatment failure [None]
